FAERS Safety Report 6204136-4 (Version None)
Quarter: 2009Q2

REPORT INFORMATION
  Report Type: 
  Country: None (occurrence: None)
  Receive Date: 20090521
  Receipt Date: 20090504
  Transmission Date: 20091009
  Serious: Yes (Other)
  Sender: FDA-Public Use
  Company Number: ADE# 09-199DPR

PATIENT
  Age: 44 Year
  Sex: Female
  Weight: 63.5036 kg

DRUGS (1)
  1. DIGOXIN [Suspect]
     Indication: CARDIAC DISORDER

REACTIONS (6)
  - ASTHENIA [None]
  - DIZZINESS [None]
  - HYPOTENSION [None]
  - PRODUCT QUALITY ISSUE [None]
  - PRURITUS [None]
  - RASH GENERALISED [None]
